FAERS Safety Report 11156956 (Version 2)
Quarter: 2015Q2

REPORT INFORMATION
  Report Type: Report from Study
  Country: JP (occurrence: JP)
  Receive Date: 20150602
  Receipt Date: 20150624
  Transmission Date: 20150821
  Serious: Yes (Hospitalization)
  Sender: FDA-Public Use
  Company Number: JP-EISAI MEDICAL RESEARCH-EC-2015-007257

PATIENT
  Age: 77 Year
  Sex: Female

DRUGS (14)
  1. ROZEREM [Concomitant]
     Active Substance: RAMELTEON
  2. TETRAMIDE [Concomitant]
     Active Substance: MIANSERIN
  3. ARICEPT [Suspect]
     Active Substance: DONEPEZIL HYDROCHLORIDE
     Route: 048
     Dates: start: 20140522
  4. DIART [Concomitant]
     Active Substance: AZOSEMIDE
  5. SAMSCA [Concomitant]
     Active Substance: TOLVAPTAN
  6. YOKUKANSAN [Concomitant]
     Active Substance: HERBALS
  7. MEMARY [Concomitant]
     Active Substance: MEMANTINE HYDROCHLORIDE
     Route: 048
     Dates: start: 20140619, end: 20140723
  8. ARICEPT [Suspect]
     Active Substance: DONEPEZIL HYDROCHLORIDE
     Indication: DEMENTIA ALZHEIMER^S TYPE
     Route: 048
     Dates: start: 20140508, end: 20140521
  9. MEMARY [Concomitant]
     Active Substance: MEMANTINE HYDROCHLORIDE
     Indication: DEMENTIA ALZHEIMER^S TYPE
     Route: 048
     Dates: start: 20140315, end: 20140507
  10. ARTIST [Concomitant]
     Active Substance: CARVEDILOL
  11. ALDACTONE [Concomitant]
     Active Substance: SPIRONOLACTONE
  12. DESYREL [Concomitant]
     Active Substance: TRAZODONE HYDROCHLORIDE
  13. WARFARIN [Concomitant]
     Active Substance: WARFARIN
  14. MEMARY [Concomitant]
     Active Substance: MEMANTINE HYDROCHLORIDE
     Route: 048
     Dates: start: 20140508, end: 20140618

REACTIONS (3)
  - Fall [Recovered/Resolved]
  - Bradycardia [Recovering/Resolving]
  - Laceration [Recovering/Resolving]

NARRATIVE: CASE EVENT DATE: 201408
